FAERS Safety Report 6830085-4 (Version None)
Quarter: 2010Q3

REPORT INFORMATION
  Report Type: 
  Country: None (occurrence: None)
  Receive Date: 20100711
  Receipt Date: 20100519
  Transmission Date: 20110219
  Serious: No
  Sender: FDA-Public Use
  Company Number: US-ALLERGAN-1006582US

PATIENT
  Age: 41 Year
  Sex: Female

DRUGS (2)
  1. LATISSE [Suspect]
     Indication: GROWTH OF EYELASHES
     Dosage: 1 GTT, UNK
     Route: 061
     Dates: start: 20090101, end: 20100501
  2. SYNTHROID [Concomitant]

REACTIONS (3)
  - DRUG ADMINISTRATION ERROR [None]
  - IRIS DISORDER [None]
  - SKIN HYPERPIGMENTATION [None]
